FAERS Safety Report 5961061-1 (Version None)
Quarter: 2008Q4

REPORT INFORMATION
  Report Type: 
  Country: None (occurrence: None)
  Receive Date: 20081121
  Receipt Date: 20081110
  Transmission Date: 20090506
  Serious: Yes (Hospitalization)
  Sender: FDA-Public Use
  Company Number: US-AMGEN-KDL316882

PATIENT
  Sex: Male
  Weight: 96 kg

DRUGS (12)
  1. EPOGEN [Suspect]
     Indication: DIALYSIS
     Route: 042
     Dates: start: 20041204
  2. CATAPRES-TTS-1 [Concomitant]
  3. DIOVAN [Concomitant]
  4. FOLIC ACID [Concomitant]
  5. LANTUS [Concomitant]
  6. NORVASC [Concomitant]
  7. PHOSLO [Concomitant]
  8. SYNTHROID [Concomitant]
  9. TOPROL-XL [Concomitant]
  10. KEPPRA [Concomitant]
  11. NEXIUM [Concomitant]
  12. CARDURA [Concomitant]

REACTIONS (2)
  - ANAEMIA [None]
  - ERYTHEMA INFECTIOSUM [None]
